FAERS Safety Report 5882849-1 (Version None)
Quarter: 2008Q3

REPORT INFORMATION
  Report Type: 
  Country: None (occurrence: None)
  Receive Date: 20080913
  Receipt Date: 20080818
  Transmission Date: 20090109
  Serious: No
  Sender: FDA-Public Use
  Company Number: US-ABBOTT-08P-163-0471553-00

PATIENT
  Sex: Female

DRUGS (3)
  1. HUMIRA [Suspect]
     Indication: RHEUMATOID ARTHRITIS
     Route: 050
  2. NAPROSYN [Concomitant]
     Indication: RHEUMATOID ARTHRITIS
     Dosage: 500 MG DAILY
     Route: 048
     Dates: start: 20050101
  3. SERTRALINE [Concomitant]
     Indication: DEPRESSION
     Dosage: 100 MG DAILY
     Route: 048

REACTIONS (3)
  - BRONCHITIS [None]
  - INFLUENZA [None]
  - MALAISE [None]
